FAERS Safety Report 9184551 (Version 1)
Quarter: 2012Q4

REPORT INFORMATION
  Report Type: 
  Country: JP (occurrence: JP)
  Receive Date: 20121101
  Receipt Date: 20121101
  Transmission Date: 20130627
  Serious: Yes (Other)
  Sender: FDA-Public Use
  Company Number: JP-PFIZER INC-2012271079

PATIENT
  Age: 75 Year
  Sex: Male

DRUGS (1)
  1. SOLANAX [Suspect]
     Indication: EMOTIONAL DISTRESS
     Dosage: 0.4 mg, 2x/day
     Route: 048

REACTIONS (1)
  - Bedridden [Unknown]
